FAERS Safety Report 5305844-X (Version None)
Quarter: 2007Q2

REPORT INFORMATION
  Report Type: 
  Country: None (occurrence: None)
  Receive Date: 20070424
  Receipt Date: 20070418
  Transmission Date: 20071010
  Serious: Yes (Hospitalization)
  Sender: FDA-Public Use
  Company Number: FRWYE496119APR07

PATIENT
  Sex: Male
  Weight: 11.6 kg

DRUGS (4)
  1. ADVIL [Suspect]
     Indication: OTITIS MEDIA ACUTE
     Dosage: UNKNOWN
     Route: 048
     Dates: start: 20070204, end: 20070208
  2. ADVIL [Suspect]
     Indication: PYREXIA
  3. DOLIPRANE [Concomitant]
     Indication: OTITIS MEDIA ACUTE
     Dosage: UNKNOWN
     Dates: start: 20070204, end: 20070208
  4. DOLIPRANE [Concomitant]
     Indication: PYREXIA

REACTIONS (2)
  - ASTHENIA [None]
  - CELLULITIS [None]
